FAERS Safety Report 25268269 (Version 2)
Quarter: 2025Q2

REPORT INFORMATION
  Report Type: Report from Study
  Country: US (occurrence: US)
  Receive Date: 20250505
  Receipt Date: 20250510
  Transmission Date: 20250716
  Serious: Yes (Other)
  Sender: ACADIA PHARMACEUTICALS
  Company Number: US-ACADIA PHARMACEUTICALS INC.-ACA-2025-TRF-004984

PATIENT
  Sex: Female
  Weight: 15.3 kg

DRUGS (12)
  1. DAYBUE [Suspect]
     Active Substance: TROFINETIDE
     Indication: Rett syndrome
     Dosage: 30 MILLILITER, BID
     Route: 048
     Dates: start: 202305
  2. EPIDIOLEX [Concomitant]
     Active Substance: CANNABIDIOL
  3. VIMPAT [Concomitant]
     Active Substance: LACOSAMIDE
  4. VALTOCO [Concomitant]
     Active Substance: DIAZEPAM
  5. TRILEPTAL [Concomitant]
     Active Substance: OXCARBAZEPINE
  6. ONFI [Concomitant]
     Active Substance: CLOBAZAM
  7. SINGULAIR [Concomitant]
     Active Substance: MONTELUKAST SODIUM
  8. CLONIDINE [Concomitant]
     Active Substance: CLONIDINE
  9. CLONAZEPAM [Concomitant]
     Active Substance: CLONAZEPAM
  10. FLONASE [Concomitant]
     Active Substance: FLUTICASONE PROPIONATE
  11. ZYRTEC [Concomitant]
     Active Substance: CETIRIZINE HYDROCHLORIDE
  12. XCOPRI [Concomitant]
     Active Substance: CENOBAMATE

REACTIONS (2)
  - Tonic convulsion [Unknown]
  - Product dose omission issue [Not Recovered/Not Resolved]
